FAERS Safety Report 7177522-6 (Version None)
Quarter: 2010Q4

REPORT INFORMATION
  Report Type: 
  Country: None (occurrence: None)
  Receive Date: 20101220
  Receipt Date: 20101203
  Transmission Date: 20110411
  Serious: Yes (Other)
  Sender: FDA-Public Use
  Company Number: PHFR2010GB03039

PATIENT
  Sex: Male
  Weight: 101 kg

DRUGS (9)
  1. CLOZARIL [Suspect]
     Indication: SCHIZOPHRENIA
     Dosage: UNK
     Route: 048
     Dates: start: 20010310
  2. CLOZARIL [Suspect]
     Dosage: 500MG DAILY
     Route: 048
     Dates: start: 20100827
  3. MOVICOL [Concomitant]
     Indication: CONSTIPATION
     Dosage: 1 TABLET DAILY
     Route: 048
  4. MOVICOL [Concomitant]
  5. BECLOMETHASONE DIPROPIONATE [Concomitant]
     Indication: ASTHMA
     Dosage: 2 PUFFS, BID
  6. OMEPRAZOLE [Concomitant]
     Indication: PEPTIC ULCER
     Dosage: UNK
     Route: 048
  7. SALBUTAMOL [Concomitant]
     Indication: ASTHMA
     Dosage: 2PUFFS, BID
  8. SALMETEROL [Concomitant]
     Indication: ASTHMA
     Dosage: 2PUFFS, BID
  9. BISACODYL [Concomitant]
     Indication: CONSTIPATION
     Dosage: 5 MG, BID
     Route: 048

REACTIONS (6)
  - ASTHMA [None]
  - BLOOD CREATINE PHOSPHOKINASE INCREASED [None]
  - CHRONIC OBSTRUCTIVE PULMONARY DISEASE [None]
  - HOT FLUSH [None]
  - MALAISE [None]
  - SEDATION [None]
